FAERS Safety Report 6121343-X (Version None)
Quarter: 2009Q1

REPORT INFORMATION
  Report Type: 
  Country: None (occurrence: None)
  Receive Date: 20090313
  Receipt Date: 20090303
  Transmission Date: 20090719
  Serious: Yes (Other)
  Sender: FDA-Public Use
  Company Number: 8039416

PATIENT
  Age: 58 Year
  Sex: Female
  Weight: 109 kg

DRUGS (13)
  1. CIMZIA [Suspect]
     Indication: CROHN'S DISEASE
     Dosage: 400 MG SC
     Route: 058
     Dates: start: 20081007, end: 20081209
  2. NORPRAMIN [Concomitant]
  3. AZASAN [Concomitant]
  4. PENTASA [Concomitant]
  5. LEVOTHYROXINE [Concomitant]
  6. HYZAAR [Concomitant]
  7. ALLEGRA [Concomitant]
  8. MIRAPEX [Concomitant]
  9. VITAMIN B-12 [Concomitant]
  10. DAILY VITAMINS [Concomitant]
  11. CALCIUM D [Concomitant]
  12. OMEGA FISH OIL [Concomitant]
  13. FOLIC ACID [Concomitant]

REACTIONS (13)
  - ARTHRALGIA [None]
  - CHEST PAIN [None]
  - COUGH [None]
  - DYSPNOEA EXERTIONAL [None]
  - EJECTION FRACTION DECREASED [None]
  - FATIGUE [None]
  - FLUID RETENTION [None]
  - HYPOAESTHESIA [None]
  - ILL-DEFINED DISORDER [None]
  - JOINT SWELLING [None]
  - PARAESTHESIA [None]
  - SKIN DISCOLOURATION [None]
  - SWELLING [None]
